FAERS Safety Report 9158233 (Version 1)
Quarter: 2013Q1

REPORT INFORMATION
  Report Type: Spontaneous
  Country: US (occurrence: US)
  Receive Date: 20130312
  Receipt Date: 20130312
  Transmission Date: 20140127
  Serious: No
  Sender: FDA-Public Use
  Company Number: US-BAUSCH-BL-2012-000731

PATIENT
  Age: 71 Year
  Sex: Female

DRUGS (3)
  1. CARTEOLOL HYDROCHLORIDE [Suspect]
     Indication: PRODUCT USED FOR UNKNOWN INDICATION
     Dosage: 1 DROP IN EACH EYE DAILY
     Route: 047
  2. LATANOPROST [Suspect]
     Indication: GLAUCOMA
  3. TRAVOPROST [Concomitant]

REACTIONS (2)
  - Dark circles under eyes [Unknown]
  - Eye pruritus [Unknown]
